FAERS Safety Report 16594500 (Version 1)
Quarter: 2019Q3

REPORT INFORMATION
  Report Type: Report from Study
  Country: CA (occurrence: CA)
  Receive Date: 20190718
  Receipt Date: 20190718
  Transmission Date: 20191004
  Serious: Yes (Hospitalization)
  Sender: FDA-Public Use
  Company Number: CA-TAKEDA-2019TUS043715

PATIENT
  Age: 59 Year
  Sex: Female

DRUGS (5)
  1. VEDOLIZUMAB [Suspect]
     Active Substance: VEDOLIZUMAB
     Dosage: 300 MILLIGRAM
     Route: 042
     Dates: start: 20171229
  2. CORTIMENT                          /00028601/ [Concomitant]
     Active Substance: HYDROCORTISONE
     Dosage: UNK
  3. VEDOLIZUMAB [Suspect]
     Active Substance: VEDOLIZUMAB
     Indication: COLITIS ULCERATIVE
     Dosage: 300 MILLIGRAM
     Route: 042
     Dates: start: 20161220
  4. ENTOCORT ENEMA [Concomitant]
     Dosage: UNK
  5. RISEDRONATE TEVA [Concomitant]
     Active Substance: RISEDRONATE SODIUM
     Indication: BONE DENSITY DECREASED
     Dosage: UNK

REACTIONS (2)
  - Vertigo [Unknown]
  - Off label use [Unknown]

NARRATIVE: CASE EVENT DATE: 20171229
